FAERS Safety Report 23662692 (Version 1)
Quarter: 2024Q1

REPORT INFORMATION
  Report Type: Spontaneous
  Country: US (occurrence: US)
  Receive Date: 20240322
  Receipt Date: 20240322
  Transmission Date: 20240410
  Serious: Yes (Hospitalization)
  Sender: FDA-Public Use
  Company Number: US-PARI RESPIRATORY EQUIPMENT, INC.-2024PAR00026

PATIENT
  Age: 6 Year
  Sex: Female

DRUGS (2)
  1. KITABIS PAK [Suspect]
     Active Substance: TOBRAMYCIN
     Indication: Tracheitis
     Dosage: 1 AMPULE (300MG) TWICE DAILY FOR 60 DAYS
  2. KITABIS PAK [Suspect]
     Active Substance: TOBRAMYCIN
     Indication: Illness

REACTIONS (2)
  - Oxygen therapy [Unknown]
  - Off label use [Unknown]

NARRATIVE: CASE EVENT DATE: 20240210
